FAERS Safety Report 6156119-0 (Version None)
Quarter: 2009Q2

REPORT INFORMATION
  Report Type: 
  Country: None (occurrence: None)
  Receive Date: 20090413
  Receipt Date: 20090413
  Transmission Date: 20091009
  Serious: Yes (Life-Threatening)
  Sender: FDA-Public Use
  Company Number: None

PATIENT
  Age: 73 Year
  Sex: Female
  Weight: 70.7611 kg

DRUGS (6)
  1. RECLAST [Suspect]
     Indication: OSTEOPOROSIS
     Dates: start: 20090312, end: 20090312
  2. LIPITOR [Concomitant]
  3. ARIMIDEX [Concomitant]
  4. VIACTIVE CALCIUM [Concomitant]
  5. LEXAPRO [Concomitant]
  6. NEURONTIN [Concomitant]

REACTIONS (7)
  - BONE PAIN [None]
  - CARDIAC FAILURE CONGESTIVE [None]
  - CONGESTIVE CARDIOMYOPATHY [None]
  - DIARRHOEA [None]
  - FEELING HOT [None]
  - INFUSION RELATED REACTION [None]
  - PYREXIA [None]
